FAERS Safety Report 9080761 (Version 1)
Quarter: 2013Q1

REPORT INFORMATION
  Report Type: Report from Study
  Country: US (occurrence: US)
  Receive Date: 20130130
  Receipt Date: 20130130
  Transmission Date: 20140127
  Serious: No
  Sender: FDA-Public Use
  Company Number: US-ABBOTT-12P-163-0962180-00

PATIENT
  Age: 81 Year
  Sex: Female

DRUGS (8)
  1. HUMIRA 40 MG/0.8 ML PEN [Suspect]
     Indication: CROHN^S DISEASE
     Dates: start: 20120615
  2. DIAZEPAM [Concomitant]
     Indication: NERVOUSNESS
  3. LABETALOL [Concomitant]
     Indication: HYPERTENSION
  4. LOTREL [Concomitant]
     Indication: HYPERTENSION
     Dosage: 5/10 EVERY DAY
  5. HYDROCHLOROTHIAZIDE [Concomitant]
     Indication: DIURETIC THERAPY
     Dosage: 12.5MG DAILY
  6. SIMVASTATIN [Concomitant]
     Indication: BLOOD CHOLESTEROL
     Dosage: 20MG DAILY
  7. PREMARIN [Concomitant]
     Indication: HORMONE REPLACEMENT THERAPY
     Dosage: .0625 EVERY DAY
  8. FERREX OTC [Concomitant]
     Indication: ANAEMIA

REACTIONS (1)
  - Injection site pain [Recovered/Resolved]
